FAERS Safety Report 8611658-5 (Version None)
Quarter: 2012Q3

REPORT INFORMATION
  Report Type: 
  Country: None (occurrence: None)
  Receive Date: 20120822
  Receipt Date: 20120817
  Transmission Date: 20120928
  Serious: No
  Sender: FDA-Public Use
  Company Number: US-PFIZER INC-2012146973

PATIENT
  Age: 64 Year
  Sex: Female
  Weight: 63.492 kg

DRUGS (3)
  1. LYRICA [Suspect]
     Indication: NEURALGIA
     Dosage: 150 MG, 2X/DAY
     Route: 048
     Dates: start: 20120601
  2. OXYCODONE [Concomitant]
     Dosage: UNK
  3. LYRICA [Suspect]
     Dosage: 225 MG DAILY (75MG IN MORNING, 150 MG AT NIGHT)
     Route: 048
     Dates: start: 20120601

REACTIONS (3)
  - FEELING ABNORMAL [None]
  - SENSORY DISTURBANCE [None]
  - HYPOAESTHESIA [None]
